FAERS Safety Report 17163854 (Version 2)
Quarter: 2019Q4

REPORT INFORMATION
  Report Type: Spontaneous
  Country: DE (occurrence: DE)
  Receive Date: 20191217
  Receipt Date: 20191223
  Transmission Date: 20200122
  Serious: Yes (Hospitalization)
  Sender: FDA-Public Use
  Company Number: DE-ABBVIE-19K-062-3190940-00

PATIENT
  Age: 13 Year
  Sex: Male
  Weight: 55.7 kg

DRUGS (2)
  1. ADALIMUMAB [Suspect]
     Active Substance: ADALIMUMAB
     Indication: CROHN^S DISEASE
     Dosage: FREQUENCY - EVERY 7-14 DAYS
     Route: 058
     Dates: start: 20190319
  2. VITAMIN D3 [Concomitant]
     Active Substance: CHOLECALCIFEROL
     Indication: VITAMIN D DEFICIENCY
     Dosage: TABLET/CAPSULE
     Route: 048
     Dates: start: 201902

REACTIONS (7)
  - Renal colic [Recovered/Resolved]
  - Ureterolithiasis [Recovered/Resolved]
  - Haematuria [Recovered/Resolved]
  - Abdominal pain [Recovered/Resolved]
  - Nephrolithiasis [Recovered/Resolved]
  - Urinary tract obstruction [Recovered/Resolved]
  - Product dispensing error [Unknown]

NARRATIVE: CASE EVENT DATE: 20191203
